FAERS Safety Report 9037988 (Version 1)
Quarter: 2013Q1

REPORT INFORMATION
  Report Type: Spontaneous
  Country: US (occurrence: US)
  Receive Date: 20130129
  Receipt Date: 20130129
  Transmission Date: 20140127
  Serious: No
  Sender: FDA-Public Use
  Company Number: US-ABBOTT-12P-163-0925945-00

PATIENT
  Sex: Female
  Weight: 72.64 kg

DRUGS (7)
  1. HUMIRA 40 MG/0.8 ML PEN [Suspect]
     Indication: PSORIASIS
     Route: 058
     Dates: start: 2007, end: 2007
  2. HUMIRA 40 MG/0.8 ML PEN [Suspect]
     Indication: PSORIATIC ARTHROPATHY
     Route: 058
     Dates: start: 201203
  3. METHOTREXATE [Concomitant]
     Indication: PSORIASIS
     Dates: start: 1997
  4. METHOTREXATE [Concomitant]
     Indication: PSORIATIC ARTHROPATHY
  5. FOLIC ACID [Concomitant]
     Indication: ILL-DEFINED DISORDER
     Dates: start: 1997
  6. UNKNOWN MEDICATION [Concomitant]
     Indication: ASTHMA
  7. UNKNOWN MEDICATIONS [Concomitant]
     Indication: HYPERTENSION

REACTIONS (2)
  - Drug ineffective [Recovered/Resolved]
  - Injection site pain [Recovering/Resolving]
